FAERS Safety Report 7434890-5 (Version None)
Quarter: 2011Q2

REPORT INFORMATION
  Report Type: 
  Country: None (occurrence: None)
  Receive Date: 20110425
  Receipt Date: 20110420
  Transmission Date: 20111010
  Serious: Yes (Death, Hospitalization)
  Sender: FDA-Public Use
  Company Number: DZ-ROCHE-756588

PATIENT
  Age: 30 Year
  Sex: Female

DRUGS (2)
  1. COPEGUS [Suspect]
     Indication: HEPATITIS C
     Route: 065
     Dates: start: 20100101, end: 20100101
  2. PEGASYS [Suspect]
     Indication: HEPATITIS C
     Route: 065
     Dates: start: 20100101, end: 20100101

REACTIONS (2)
  - ANAEMIA [None]
  - METRORRHAGIA [None]
